FAERS Safety Report 17206737 (Version 1)
Quarter: 2019Q4

REPORT INFORMATION
  Report Type: Report from Study
  Country: JP (occurrence: JP)
  Receive Date: 20191227
  Receipt Date: 20191227
  Transmission Date: 20200122
  Serious: Yes (Other)
  Sender: FDA-Public Use
  Company Number: JP-BRISTOL-MYERS SQUIBB COMPANY-BMS-2019-123696

PATIENT
  Sex: Female
  Weight: 55 kg

DRUGS (8)
  1. METHOTREXATE. [Concomitant]
     Active Substance: METHOTREXATE
     Indication: JUVENILE IDIOPATHIC ARTHRITIS
     Dosage: 6 MILLIGRAM
     Route: 048
  2. RIMATIL [Concomitant]
     Active Substance: BUCILLAMINE
     Indication: JUVENILE IDIOPATHIC ARTHRITIS
     Dosage: 100 MILLIGRAM
     Route: 048
     Dates: start: 20130603
  3. BAYASPIRIN [Concomitant]
     Active Substance: ASPIRIN
     Indication: DISEASE COMPLICATION
     Dosage: 100 MILLIGRAM
     Route: 048
     Dates: start: 20170220
  4. PERSANTIN [Concomitant]
     Active Substance: DIPYRIDAMOLE
     Indication: DISEASE COMPLICATION
     Dosage: 50 MILLIGRAM
     Route: 048
     Dates: start: 20170220
  5. ABATACEPT [Suspect]
     Active Substance: ABATACEPT
     Indication: JUVENILE IDIOPATHIC ARTHRITIS
     Dosage: 500 MILLIGRAM
     Route: 041
     Dates: start: 20190225
  6. PREDNISOLONE. [Concomitant]
     Active Substance: PREDNISOLONE
     Indication: JUVENILE IDIOPATHIC ARTHRITIS
     Dosage: 2 MILLIGRAM
     Route: 065
     Dates: start: 20150627
  7. PROGRAF [Concomitant]
     Active Substance: TACROLIMUS
     Indication: JUVENILE IDIOPATHIC ARTHRITIS
     Dosage: 1 MILLIGRAM
     Route: 048
     Dates: start: 20140929
  8. PREDNISOLONE. [Concomitant]
     Active Substance: PREDNISOLONE
     Indication: PRODUCT USED FOR UNKNOWN INDICATION
     Dosage: 1 MILLIGRAM
     Route: 048

REACTIONS (2)
  - Otitis media acute [Recovering/Resolving]
  - Bronchitis [Recovering/Resolving]

NARRATIVE: CASE EVENT DATE: 201909
